FAERS Safety Report 7128893-8 (Version None)
Quarter: 2010Q4

REPORT INFORMATION
  Report Type: 
  Country: None (occurrence: None)
  Receive Date: 20101130
  Receipt Date: 20101130
  Transmission Date: 20110411
  Serious: Yes (Other)
  Sender: FDA-Public Use
  Company Number: A0873523A

PATIENT
  Age: 92 Year
  Sex: Male

DRUGS (2)
  1. ADVAIR DISKUS 100/50 [Suspect]
     Route: 055
  2. AVODART [Suspect]
     Dosage: .5MG UNKNOWN
     Route: 048

REACTIONS (4)
  - BILE DUCT STENT INSERTION [None]
  - CANDIDIASIS [None]
  - FALL [None]
  - LYMPHOMA [None]
